FAERS Safety Report 13555531 (Version 2)
Quarter: 2017Q2

REPORT INFORMATION
  Report Type: Spontaneous
  Country: US (occurrence: US)
  Receive Date: 20170517
  Receipt Date: 20170524
  Transmission Date: 20170830
  Serious: Yes (Other)
  Sender: FDA-Public Use
  Company Number: US-JNJFOC-20170509512

PATIENT
  Age: 6 Year
  Sex: Male

DRUGS (1)
  1. RISPERDAL [Suspect]
     Active Substance: RISPERIDONE
     Indication: AUTISM SPECTRUM DISORDER
     Dosage: STARTED COUPLE OF WEEKS BEFORE THE DATE OF THIS REPORT
     Route: 048
     Dates: start: 2017

REACTIONS (4)
  - Product quality issue [Unknown]
  - Intentional self-injury [Unknown]
  - Treatment noncompliance [Unknown]
  - Somnolence [Recovered/Resolved]

NARRATIVE: CASE EVENT DATE: 2017
